FAERS Safety Report 9352943 (Version 1)
Quarter: 2013Q2

REPORT INFORMATION
  Report Type: Spontaneous
  Country: US (occurrence: None)
  Receive Date: 20130614
  Receipt Date: 20130614
  Transmission Date: 20140414
  Serious: Yes (Hospitalization)
  Sender: FDA-Public Use
  Company Number: None

PATIENT
  Age: 3 Year
  Sex: Male
  Weight: 13.83 kg

DRUGS (1)
  1. DULERA [Suspect]
     Indication: ASTHMA
     Dosage: 2 PUFFS BID INHAL?ESTIMATED 1.5 YEARS
     Route: 055

REACTIONS (5)
  - Mental status changes [None]
  - Body height abnormal [None]
  - Vomiting [None]
  - Adrenal suppression [None]
  - Product packaging quantity issue [None]
